FAERS Safety Report 14180358 (Version 1)
Quarter: 2017Q4

REPORT INFORMATION
  Report Type: Other
  Country: None (occurrence: DE)
  Receive Date: 20171110
  Receipt Date: 20171110
  Transmission Date: 20180321
  Serious: Yes (Life-Threatening, Other)
  Sender: FDA-Public Use
  Company Number: DE-B. BRAUN MEDICAL INC.-2033836

PATIENT
  Age: 74 Year

DRUGS (2)
  1. POTASSIUM CHLORIDE FOR INJECTION CONCENTRATE USP 0264-1940-20 [Suspect]
     Active Substance: POTASSIUM CHLORIDE
     Indication: HYPOKALAEMIA
     Route: 008
  2. ROPIVACAINE HCL [Concomitant]
     Active Substance: ROPIVACAINE HYDROCHLORIDE
     Route: 008

REACTIONS (10)
  - Quadriplegia [Recovered/Resolved]
  - Incorrect route of drug administration [Unknown]
  - Spinal cord paralysis [Recovered/Resolved]
  - Respiratory depression [Unknown]
  - Loss of consciousness [None]
  - Abdominal pain upper [None]
  - Acute myocardial infarction [None]
  - Pain in extremity [None]
  - Anxiety [None]
  - Pruritus [None]
